FAERS Safety Report 13328783 (Version 1)
Quarter: 2017Q1

REPORT INFORMATION
  Report Type: Spontaneous
  Country: US (occurrence: US)
  Receive Date: 20170311
  Receipt Date: 20170311
  Transmission Date: 20170428
  Serious: Yes (Disabling, Other)
  Sender: FDA-Public Use
  Company Number: None

PATIENT
  Age: 89 Year
  Sex: Male
  Weight: 96.75 kg

DRUGS (3)
  1. NITROGLYCERIN. [Concomitant]
     Active Substance: NITROGLYCERIN
  2. GABAPENTIN. [Suspect]
     Active Substance: GABAPENTIN
     Indication: DIABETIC NEUROPATHY
     Route: 048
     Dates: start: 20170302, end: 20170306
  3. CLONIDINE. [Concomitant]
     Active Substance: CLONIDINE

REACTIONS (8)
  - Vision blurred [None]
  - Peripheral swelling [None]
  - Fall [None]
  - Clumsiness [None]
  - Memory impairment [None]
  - Weight increased [None]
  - Balance disorder [None]
  - Tremor [None]

NARRATIVE: CASE EVENT DATE: 20170304
